FAERS Safety Report 24715821 (Version 1)
Quarter: 2024Q4

REPORT INFORMATION
  Report Type: Report from Study
  Country: KR (occurrence: KR)
  Receive Date: 20241210
  Receipt Date: 20241210
  Transmission Date: 20250115
  Serious: Yes (Other)
  Sender: ROCHE
  Company Number: KR-ROCHE-10000148010

PATIENT

DRUGS (2)
  1. TRASTUZUMAB [Suspect]
     Active Substance: TRASTUZUMAB
     Indication: Breast cancer
     Dosage: LOADING DOSE
     Route: 065
  2. TRASTUZUMAB [Suspect]
     Active Substance: TRASTUZUMAB
     Dosage: SUBSEQUENT DOSE
     Route: 065

REACTIONS (6)
  - Arrhythmia [Unknown]
  - Cardiac failure [Unknown]
  - Angina pectoris [Unknown]
  - Myocarditis [Unknown]
  - Cardiac valve disease [Unknown]
  - Pericardial effusion [Unknown]
